FAERS Safety Report 8976132 (Version 1)
Quarter: 2012Q4

REPORT INFORMATION
  Report Type: 
  Country: US (occurrence: US)
  Receive Date: 20121220
  Receipt Date: 20121220
  Transmission Date: 20130627
  Serious: Yes (Other)
  Sender: FDA-Public Use
  Company Number: US-INCYTE CORPORATION-2012IN002052

PATIENT
  Age: 75 Year
  Sex: Male
  Weight: 65.31 kg

DRUGS (9)
  1. JAKAFI [Suspect]
     Indication: MYELOFIBROSIS
     Dosage: 20 mg, bid
     Route: 048
     Dates: start: 20120824, end: 20120919
  2. JAKAFI [Suspect]
     Dosage: 15 mg, bid
     Route: 048
     Dates: start: 20120920, end: 20121004
  3. ADVAIR [Concomitant]
     Dosage: 250 mcg-50 mcg
     Route: 055
  4. ALBUTEROL [Concomitant]
  5. ASPIRIN [Concomitant]
     Dosage: 81 mg, UNK
  6. IPRATROPIUM BROMIDE [Concomitant]
     Dosage: 17 mcg, UNK
  7. MULTAQ [Concomitant]
     Dosage: 400 mg, UNK
  8. PRESERVISION LUTEIN EYE VITA.+MIN.SUP.SOFTG. [Concomitant]
     Dosage: 226 mg-200 unit-5 mg Cap
  9. TERAZOSIN [Concomitant]
     Dosage: 2 mg, UNK

REACTIONS (22)
  - Herpes zoster oticus [Recovering/Resolving]
  - Stomatitis [Unknown]
  - Skin lesion [Unknown]
  - Oropharyngeal pain [Unknown]
  - Malaise [Unknown]
  - Bone pain [Unknown]
  - Dyspnoea [Unknown]
  - Arthralgia [Unknown]
  - Fatigue [Unknown]
  - Pain [Unknown]
  - Decreased appetite [Unknown]
  - Sleep disorder [Unknown]
  - Nausea [Unknown]
  - Vomiting [Unknown]
  - Sinus headache [Unknown]
  - Asthenia [Unknown]
  - Temperature intolerance [Unknown]
  - Post herpetic neuralgia [Unknown]
  - Headache [Unknown]
  - Platelet count decreased [Unknown]
  - Haemoglobin decreased [Unknown]
  - Contusion [Unknown]
